FAERS Safety Report 5503782-0 (Version None)
Quarter: 2007Q4

REPORT INFORMATION
  Report Type: 
  Country: None (occurrence: None)
  Receive Date: 20071101
  Receipt Date: 20071030
  Transmission Date: 20080405
  Serious: Yes (Hospitalization)
  Sender: FDA-Public Use
  Company Number: AU-BRISTOL-MYERS SQUIBB COMPANY-13961917

PATIENT
  Age: 83 Year
  Sex: Female

DRUGS (7)
  1. IRBESARTAN [Suspect]
     Route: 048
     Dates: end: 20051021
  2. MELOXICAM [Suspect]
     Route: 048
     Dates: end: 20051021
  3. FRUSEMIDE [Suspect]
     Route: 048
     Dates: end: 20051021
  4. CALTRATE [Concomitant]
  5. MADOPAR [Concomitant]
  6. CLOPIDOGREL BISULFATE [Concomitant]
  7. VERAPAMIL HCL [Concomitant]

REACTIONS (3)
  - DEHYDRATION [None]
  - DIARRHOEA [None]
  - RENAL IMPAIRMENT [None]
